FAERS Safety Report 9682983 (Version 2)
Quarter: 2013Q4

REPORT INFORMATION
  Report Type: Spontaneous
  Country: US (occurrence: US)
  Receive Date: 20131112
  Receipt Date: 20131112
  Transmission Date: 20140711
  Serious: Yes (Hospitalization)
  Sender: FDA-Public Use
  Company Number: US-UCBSA-097307

PATIENT
  Age: 60 Year
  Sex: Male
  Weight: 65.3 kg

DRUGS (2)
  1. VIMPAT [Suspect]
     Indication: CONVULSION
     Route: 048
  2. KEPPRA XR [Suspect]
     Indication: CONVULSION
     Dosage: EXTENDED RELEASE TABLETS; 750 MG 4/DAILY

REACTIONS (1)
  - Cardiac disorder [Unknown]
